FAERS Safety Report 26104076 (Version 2)
Quarter: 2025Q4

REPORT INFORMATION
  Report Type: Spontaneous
  Country: JP (occurrence: JP)
  Receive Date: 20251129
  Receipt Date: 20251204
  Transmission Date: 20260117
  Serious: Yes (Hospitalization)
  Sender: BOEHRINGER INGELHEIM
  Company Number: JP-NBI-2025-BI-110499

PATIENT
  Age: 73 Year
  Sex: Female

DRUGS (4)
  1. OFEV [Suspect]
     Active Substance: NINTEDANIB
     Indication: Systemic scleroderma
  2. OFEV [Suspect]
     Active Substance: NINTEDANIB
     Indication: Interstitial lung disease
  3. MIZORIBINE [Concomitant]
     Active Substance: MIZORIBINE
     Indication: Systemic scleroderma
  4. MIZORIBINE [Concomitant]
     Active Substance: MIZORIBINE
     Indication: Interstitial lung disease

REACTIONS (4)
  - Anti-neutrophil cytoplasmic antibody positive vasculitis [Unknown]
  - Glomerulonephritis rapidly progressive [Unknown]
  - Microscopic polyangiitis [Recovered/Resolved]
  - Diarrhoea [Unknown]
